APPROVED DRUG PRODUCT: OLANZAPINE
Active Ingredient: OLANZAPINE
Strength: 5MG
Dosage Form/Route: TABLET;ORAL
Application: A076255 | Product #002 | TE Code: AB
Applicant: DR REDDYS LABORATORIES LTD
Approved: Apr 23, 2012 | RLD: No | RS: No | Type: RX